FAERS Safety Report 5852520-0 (Version None)
Quarter: 2008Q3

REPORT INFORMATION
  Report Type: 
  Country: None (occurrence: None)
  Receive Date: 20080820
  Receipt Date: 20080820
  Transmission Date: 20090109
  Serious: Yes (Other)
  Sender: FDA-Public Use
  Company Number: None

PATIENT
  Age: 62 Year
  Sex: Female
  Weight: 80.7403 kg

DRUGS (1)
  1. HYDROCODONE BITARTRATE + ACETAMINOPHEN [Suspect]
     Indication: PROCEDURAL PAIN
     Dosage: 1 TABLET EVERY 4 - 6 HOURS PO
     Route: 048
     Dates: start: 20080806, end: 20080817

REACTIONS (1)
  - RASH [None]
